FAERS Safety Report 25135174 (Version 1)
Quarter: 2025Q1

REPORT INFORMATION
  Report Type: Report from Study
  Country: US (occurrence: US)
  Receive Date: 20250328
  Receipt Date: 20250328
  Transmission Date: 20250409
  Serious: Yes (Other)
  Sender: IPSEN BIOPHARMACEUTICALS, INC.
  Company Number: US-IPSEN Group, Research and Development-2024-18663

PATIENT
  Age: 64 Year
  Sex: Male

DRUGS (3)
  1. ONIVYDE [Suspect]
     Active Substance: IRINOTECAN HYDROCHLORIDE
     Indication: Pancreatic carcinoma
     Dosage: EVERY 2 WEEKS
     Route: 042
     Dates: start: 20240827
  2. ONIVYDE [Suspect]
     Active Substance: IRINOTECAN HYDROCHLORIDE
     Dosage: 43 MG/10 ML
     Route: 042
     Dates: start: 20240901
  3. OXALIPLATIN [Suspect]
     Active Substance: OXALIPLATIN
     Indication: Pancreatic carcinoma

REACTIONS (22)
  - Neuropathy peripheral [Recovered/Resolved]
  - Neuropathy peripheral [Not Recovered/Not Resolved]
  - Pancreatic atrophy [Recovered/Resolved]
  - Mental impairment [Recovering/Resolving]
  - Device related infection [Not Recovered/Not Resolved]
  - Catheter site infection [Recovered/Resolved]
  - Abdominal discomfort [Unknown]
  - Weight decreased [Not Recovered/Not Resolved]
  - Paraesthesia [Not Recovered/Not Resolved]
  - Oral pain [Unknown]
  - Oropharyngeal pain [Unknown]
  - Chills [Recovering/Resolving]
  - Tremor [Recovering/Resolving]
  - Asthenia [Recovering/Resolving]
  - Taste disorder [Recovering/Resolving]
  - Paraesthesia oral [Not Recovered/Not Resolved]
  - Brain fog [Not Recovered/Not Resolved]
  - Tendonitis [Not Recovered/Not Resolved]
  - Taste disorder [Recovering/Resolving]
  - Abnormal faeces [Recovered/Resolved]
  - Fatigue [Recovering/Resolving]
  - Product dose omission issue [Unknown]

NARRATIVE: CASE EVENT DATE: 20240910
